FAERS Safety Report 10476199 (Version 2)
Quarter: 2014Q3

REPORT INFORMATION
  Report Type: Spontaneous
  Country: CA (occurrence: CA)
  Receive Date: 20140925
  Receipt Date: 20140925
  Transmission Date: 20150326
  Serious: Yes (Hospitalization, Other)
  Sender: FDA-Public Use
  Company Number: CA-BAXTER-2014BAX054573

PATIENT
  Age: 57 Year
  Sex: Male

DRUGS (3)
  1. DIANEAL W/ DEXTROSE 1.5% [Suspect]
     Active Substance: CALCIUM CHLORIDE\DEXTROSE\MAGNESIUM CHLORIDE\SODIUM CHLORIDE\SODIUM LACTATE
     Indication: RENAL FAILURE
     Route: 033
     Dates: start: 201210
  2. DIANEAL W/ DEXTROSE 2.5% [Suspect]
     Active Substance: CALCIUM CHLORIDE\DEXTROSE\MAGNESIUM CHLORIDE\SODIUM CHLORIDE\SODIUM LACTATE
     Indication: RENAL FAILURE
     Route: 033
     Dates: start: 201210
  3. EXTRANEAL [Suspect]
     Active Substance: CALCIUM CHLORIDE\ICODEXTRIN\MAGNESIUM CHLORIDE\SODIUM CHLORIDE\SODIUM LACTATE
     Indication: RENAL FAILURE
     Route: 033
     Dates: start: 201210

REACTIONS (7)
  - Peripheral arterial occlusive disease [Unknown]
  - Neurological symptom [Unknown]
  - Post procedural complication [Unknown]
  - Vascular occlusion [Not Recovered/Not Resolved]
  - Cardiac disorder [Unknown]
  - Myocardial infarction [Recovering/Resolving]
  - Cerebral artery occlusion [Unknown]

NARRATIVE: CASE EVENT DATE: 201406
